FAERS Safety Report 17741686 (Version 6)
Quarter: 2021Q1

REPORT INFORMATION
  Report Type: Spontaneous
  Country: US (occurrence: US)
  Receive Date: 20200504
  Receipt Date: 20210122
  Transmission Date: 20210419
  Serious: No
  Sender: FDA-Public Use
  Company Number: US-PFIZER INC-2020175858

PATIENT
  Age: 50 Year
  Sex: Male

DRUGS (3)
  1. SOMAVERT [Suspect]
     Active Substance: PEGVISOMANT
     Indication: ACROMEGALY
     Dosage: 15 MG, DAILY
     Route: 058
     Dates: start: 2010
  2. SOMATULINE [LANREOTIDE] [Concomitant]
     Active Substance: LANREOTIDE
     Dosage: UNK
  3. SOMAVERT [Suspect]
     Active Substance: PEGVISOMANT
     Dosage: 30 MG, DAILY
     Route: 058
     Dates: start: 2017

REACTIONS (11)
  - Muscular weakness [Unknown]
  - Intentional dose omission [Unknown]
  - Visual impairment [Unknown]
  - Arthralgia [Unknown]
  - Asthenia [Unknown]
  - Cardiomegaly [Unknown]
  - Insulin-like growth factor abnormal [Not Recovered/Not Resolved]
  - Blood triglycerides decreased [Unknown]
  - Condition aggravated [Unknown]
  - Product dose omission issue [Unknown]
  - Blood glucose increased [Unknown]
